FAERS Safety Report 19761591 (Version 1)
Quarter: 2021Q3

REPORT INFORMATION
  Report Type: Spontaneous
  Country: US (occurrence: US)
  Receive Date: 20210826
  Receipt Date: 20210826
  Transmission Date: 20211014
  Serious: Yes (Hospitalization)
  Sender: FDA-Public Use
  Company Number: None

PATIENT
  Age: 45 Year
  Sex: Male

DRUGS (1)
  1. DEFERASIROX TAB FOR ORAL SUSP [Suspect]
     Active Substance: DEFERASIROX
     Indication: SICKLE CELL DISEASE
     Dosage: ?          OTHER FREQUENCY:EVERY12HOURS ;?
     Route: 048
     Dates: start: 202107

REACTIONS (1)
  - Oxygen saturation abnormal [None]

NARRATIVE: CASE EVENT DATE: 20210719
